FAERS Safety Report 23591998 (Version 1)
Quarter: 2024Q1

REPORT INFORMATION
  Report Type: Spontaneous
  Country: FR (occurrence: FR)
  Receive Date: 20240304
  Receipt Date: 20240304
  Transmission Date: 20240410
  Serious: Yes (Hospitalization)
  Sender: FDA-Public Use
  Company Number: None

PATIENT
  Age: 87 Year
  Sex: Male
  Weight: 81 kg

DRUGS (2)
  1. RAMIPRIL [Suspect]
     Active Substance: RAMIPRIL
     Indication: Hypertension
     Route: 048
     Dates: start: 2021, end: 20240112
  2. RACECADOTRIL [Suspect]
     Active Substance: RACECADOTRIL
     Indication: Product used for unknown indication
     Dosage: TIME INTERVAL: TOTAL
     Route: 048
     Dates: start: 20240112, end: 20240112

REACTIONS (2)
  - Angioedema [Recovered/Resolved]
  - Drug interaction [Recovered/Resolved]

NARRATIVE: CASE EVENT DATE: 20240112
